FAERS Safety Report 9826324 (Version 1)
Quarter: 2014Q1

REPORT INFORMATION
  Report Type: Spontaneous
  Country: US (occurrence: US)
  Receive Date: 20140117
  Receipt Date: 20140117
  Transmission Date: 20141002
  Serious: No
  Sender: FDA-Public Use
  Company Number: US-BIOGENIDEC-2014BI000346

PATIENT
  Sex: Female

DRUGS (7)
  1. TECFIDERA [Suspect]
     Indication: MULTIPLE SCLEROSIS
     Route: 048
     Dates: start: 201310
  2. BENADRYL [Concomitant]
  3. ZYRTEC D [Concomitant]
  4. VITAMIN D [Concomitant]
  5. BACLOFEN [Concomitant]
  6. OXYBUTYNIN CHLORIDE ER [Concomitant]
  7. LEVOTHYROXINE SODIUM [Concomitant]

REACTIONS (3)
  - Asthenia [Unknown]
  - White blood cell count increased [Unknown]
  - Vomiting [Unknown]
